FAERS Safety Report 19901952 (Version 1)
Quarter: 2021Q3

REPORT INFORMATION
  Report Type: Spontaneous
  Country: CA (occurrence: CA)
  Receive Date: 20210929
  Receipt Date: 20210929
  Transmission Date: 20211014
  Serious: Yes (Other)
  Sender: FDA-Public Use
  Company Number: CA-BAXTER-2021BAX030792

PATIENT
  Age: 38 Year
  Sex: Female

DRUGS (2)
  1. BREVIBLOC [Suspect]
     Active Substance: ESMOLOL HYDROCHLORIDE
     Indication: PRODUCT USED FOR UNKNOWN INDICATION
     Dosage: BOLUSES OF AMIODARONE 150 MG AND ESMOLOL 20 MG WERE ADMINISTERED.
     Route: 040
  2. AMIODARONE [Suspect]
     Active Substance: AMIODARONE
     Indication: PRODUCT USED FOR UNKNOWN INDICATION
     Dosage: BOLUSES OF AMIODARONE 150 MG AND ESMOLOL 20 MG WERE ADMINISTERED.
     Route: 040

REACTIONS (1)
  - Torsade de pointes [Unknown]
